FAERS Safety Report 11714547 (Version 1)
Quarter: 2015Q4

REPORT INFORMATION
  Report Type: Spontaneous
  Country: US (occurrence: US)
  Receive Date: 20151109
  Receipt Date: 20151109
  Transmission Date: 20160304
  Serious: Yes (Hospitalization)
  Sender: FDA-Public Use
  Company Number: US-PSKUSFDA-2015-US-0332

PATIENT
  Sex: Female

DRUGS (1)
  1. SANCUSO [Suspect]
     Active Substance: GRANISETRON
     Indication: PROPHYLAXIS OF NAUSEA AND VOMITING
     Dosage: 1 PATCH
     Dates: start: 201507

REACTIONS (1)
  - Migraine [Not Recovered/Not Resolved]

NARRATIVE: CASE EVENT DATE: 201507
